FAERS Safety Report 23988176 (Version 1)
Quarter: 2024Q2

REPORT INFORMATION
  Report Type: Spontaneous
  Country: US (occurrence: US)
  Receive Date: 20240619
  Receipt Date: 20240619
  Transmission Date: 20240716
  Serious: No
  Sender: FDA-Public Use
  Company Number: US-VEROBIOTECH-2024USVEROSPO00113

PATIENT
  Age: 7 Decade
  Sex: Male

DRUGS (1)
  1. GENOSYL [Suspect]
     Active Substance: NITRIC OXIDE
     Indication: Product used for unknown indication
     Dosage: 20 PPM

REACTIONS (4)
  - Oxygen saturation decreased [Unknown]
  - Underdose [Unknown]
  - Device occlusion [Unknown]
  - Device user interface issue [Unknown]
